FAERS Safety Report 9777126 (Version 2)
Quarter: 2014Q1

REPORT INFORMATION
  Report Type: Report from Study
  Country: FR (occurrence: FR)
  Receive Date: 20131221
  Receipt Date: 20140128
  Transmission Date: 20141002
  Serious: Yes (Hospitalization)
  Sender: FDA-Public Use
  Company Number: FR-ROCHE-1321506

PATIENT
  Sex: Female

DRUGS (15)
  1. RITUXIMAB [Suspect]
     Indication: RHEUMATOID ARTHRITIS
     Route: 041
     Dates: start: 20070306
  2. RITUXIMAB [Suspect]
     Route: 041
     Dates: start: 20070321
  3. RITUXIMAB [Suspect]
     Route: 041
     Dates: start: 20071127
  4. RITUXIMAB [Suspect]
     Route: 041
     Dates: start: 20071211
  5. RITUXIMAB [Suspect]
     Route: 041
     Dates: start: 20080826
  6. RITUXIMAB [Suspect]
     Route: 041
     Dates: start: 20080909
  7. RITUXIMAB [Suspect]
     Route: 041
     Dates: start: 20100510
  8. RITUXIMAB [Suspect]
     Route: 041
     Dates: start: 20100525
  9. RITUXIMAB [Suspect]
     Route: 041
     Dates: start: 20101117
  10. RITUXIMAB [Suspect]
     Route: 041
     Dates: start: 20101201
  11. RITUXIMAB [Suspect]
     Route: 041
     Dates: start: 20110705
  12. RITUXIMAB [Suspect]
     Route: 041
     Dates: start: 20110719
  13. RITUXIMAB [Suspect]
     Route: 041
     Dates: start: 20120402
  14. RITUXIMAB [Suspect]
     Route: 041
     Dates: start: 20120416
  15. PARACETAMOL [Concomitant]

REACTIONS (11)
  - Flushing [Recovered/Resolved]
  - Nasopharyngitis [Recovered/Resolved]
  - Dizziness [Recovered/Resolved]
  - Nausea [Recovered/Resolved]
  - Asthenia [Recovered/Resolved]
  - Pyrexia [Recovered/Resolved]
  - Bronchitis [Recovered/Resolved]
  - Diarrhoea [Not Recovered/Not Resolved]
  - Lung adenocarcinoma [Recovered/Resolved]
  - Infusion related reaction [Recovered/Resolved]
  - Headache [Recovered/Resolved]
